FAERS Safety Report 7046029-9 (Version None)
Quarter: 2010Q4

REPORT INFORMATION
  Report Type: 
  Country: None (occurrence: None)
  Receive Date: 20101014
  Receipt Date: 20101005
  Transmission Date: 20110411
  Serious: Yes (Other)
  Sender: FDA-Public Use
  Company Number: US-JNJCH-2010022887

PATIENT
  Sex: Female
  Weight: 3.2 kg

DRUGS (1)
  1. DESITIN MAXIMUM STRENGTH ORIGINAL PASTE [Suspect]
     Indication: RASH
     Dosage: TEXT:AMOUNT TO COVER RASH 2X PER DAY
     Route: 061
     Dates: start: 20101003, end: 20101004

REACTIONS (4)
  - APPLICATION SITE ERYTHEMA [None]
  - APPLICATION SITE SWELLING [None]
  - BLISTER [None]
  - BURNS THIRD DEGREE [None]
